FAERS Safety Report 22594470 (Version 1)
Quarter: 2023Q2

REPORT INFORMATION
  Report Type: Spontaneous
  Country: CA (occurrence: None)
  Receive Date: 20230613
  Receipt Date: 20230613
  Transmission Date: 20230722
  Serious: Yes (Other)
  Sender: FDA-Public Use
  Company Number: CA-PFIZER INC-202300208922

PATIENT
  Age: 52 Year
  Sex: Male

DRUGS (5)
  1. METHOTREXATE [Suspect]
     Active Substance: METHOTREXATE
     Indication: Rheumatoid arthritis
  2. HYDROXYCHLOROQUINE SULFATE [Concomitant]
     Active Substance: HYDROXYCHLOROQUINE SULFATE
  3. PREDNISONE [Concomitant]
     Active Substance: PREDNISONE
  4. SULFASALAZINE [Concomitant]
     Active Substance: SULFASALAZINE
  5. ABRILADA [Concomitant]
     Active Substance: ADALIMUMAB-AFZB
     Indication: Rheumatoid arthritis
     Dates: start: 20230606

REACTIONS (8)
  - Rheumatoid arthritis [Not Recovered/Not Resolved]
  - Liver function test abnormal [Unknown]
  - Pain in jaw [Not Recovered/Not Resolved]
  - Feeding disorder [Not Recovered/Not Resolved]
  - Speech disorder [Not Recovered/Not Resolved]
  - Loss of personal independence in daily activities [Not Recovered/Not Resolved]
  - Gait disturbance [Not Recovered/Not Resolved]
  - Pain in extremity [Not Recovered/Not Resolved]
